FAERS Safety Report 8557943-7 (Version None)
Quarter: 2012Q3

REPORT INFORMATION
  Report Type: 
  Country: None (occurrence: None)
  Receive Date: 20120801
  Receipt Date: 20120730
  Transmission Date: 20120928
  Serious: Yes (Hospitalization)
  Sender: FDA-Public Use
  Company Number: PHHY2011BR38587

PATIENT
  Sex: Female

DRUGS (1)
  1. RITALIN [Suspect]
     Indication: ATTENTION DEFICIT/HYPERACTIVITY DISORDER
     Dosage: 10 MG, BID
     Route: 048

REACTIONS (8)
  - ABORTION SPONTANEOUS [None]
  - UTERINE HAEMORRHAGE [None]
  - ABDOMINAL PAIN [None]
  - PAIN [None]
  - ANXIETY [None]
  - INFLAMMATION [None]
  - MATERNAL EXPOSURE DURING PREGNANCY [None]
  - CERVICAL DISCHARGE [None]
